FAERS Safety Report 6672686-2 (Version None)
Quarter: 2010Q2

REPORT INFORMATION
  Report Type: 
  Country: None (occurrence: None)
  Receive Date: 20100408
  Receipt Date: 20100401
  Transmission Date: 20101027
  Serious: Yes (Hospitalization)
  Sender: FDA-Public Use
  Company Number: US-SANOFI-AVENTIS-2010SA019644

PATIENT
  Age: 62 Year
  Sex: Male

DRUGS (3)
  1. GLIMEPIRIDE [Suspect]
     Route: 048
     Dates: start: 20090507
  2. INVESTIGATIONAL DRUG [Suspect]
     Route: 058
     Dates: start: 20090625
  3. METFORMIN HYDROCHLORIDE [Suspect]
     Route: 048

REACTIONS (2)
  - CARDIAC FAILURE [None]
  - DYSPNOEA [None]
